FAERS Safety Report 10066638 (Version 1)
Quarter: 2014Q2

REPORT INFORMATION
  Report Type: Report from Study
  Country: AU (occurrence: AU)
  Receive Date: 20140408
  Receipt Date: 20140408
  Transmission Date: 20141212
  Serious: Yes (Other)
  Sender: FDA-Public Use
  Company Number: AU-VERTEX PHARMACEUTICALS INC-2014-001834

PATIENT
  Age: 57 Year
  Sex: Male

DRUGS (1)
  1. TELAPREVIR [Suspect]
     Indication: HEPATITIS C
     Dosage: UNK
     Dates: start: 20140303

REACTIONS (9)
  - Condition aggravated [Unknown]
  - Rash [Unknown]
  - Rash [Unknown]
  - Body temperature increased [Unknown]
  - Lip dry [Unknown]
  - Pruritus [Unknown]
  - Skin lesion [Unknown]
  - Photosensitivity reaction [Unknown]
  - Oral disorder [Unknown]
